FAERS Safety Report 11296560 (Version 1)
Quarter: 2015Q3

REPORT INFORMATION
  Report Type: Spontaneous
  Country: US (occurrence: US)
  Receive Date: 20150722
  Receipt Date: 20150722
  Transmission Date: 20151125
  Serious: Yes (Other)
  Sender: FDA-Public Use
  Company Number: US-ELI_LILLY_AND_COMPANY-US201003006069

PATIENT
  Age: 67 Year
  Sex: Male
  Weight: 74 kg

DRUGS (6)
  1. ASA [Concomitant]
     Active Substance: ASPIRIN
  2. INTEGRILIN [Concomitant]
     Active Substance: EPTIFIBATIDE
  3. VASOPRESSIN. [Concomitant]
     Active Substance: VASOPRESSIN
  4. EFFIENT [Suspect]
     Active Substance: PRASUGREL HYDROCHLORIDE
     Indication: ACUTE MYOCARDIAL INFARCTION
     Dosage: 60 MG, UNK
     Dates: start: 20100315, end: 20100315
  5. PLAVIX [Concomitant]
     Active Substance: CLOPIDOGREL BISULFATE
     Dosage: 75 MG, UNK
     Dates: start: 20100316
  6. ANGIOMAX [Concomitant]
     Active Substance: BIVALIRUDIN

REACTIONS (2)
  - Vessel puncture site haematoma [Recovered/Resolved]
  - Haemorrhage [Recovered/Resolved]

NARRATIVE: CASE EVENT DATE: 20100315
